FAERS Safety Report 6535398-1 (Version None)
Quarter: 2010Q1

REPORT INFORMATION
  Report Type: 
  Country: None (occurrence: None)
  Receive Date: 20100111
  Receipt Date: 20100111
  Transmission Date: 20100710
  Serious: Yes (Other)
  Sender: FDA-Public Use
  Company Number: None

PATIENT
  Sex: Female
  Weight: 72.5755 kg

DRUGS (2)
  1. NITROFURANTOIN [Suspect]
  2. FLUCONAZOLE [Suspect]

REACTIONS (3)
  - MENORRHAGIA [None]
  - METRORRHAGIA [None]
  - MUSCLE SPASMS [None]
